FAERS Safety Report 6179983-8 (Version None)
Quarter: 2009Q2

REPORT INFORMATION
  Report Type: 
  Country: None (occurrence: None)
  Receive Date: 20090505
  Receipt Date: 20090429
  Transmission Date: 20091009
  Serious: No
  Sender: FDA-Public Use
  Company Number: US-B.I. PHARMACEUTICALS,INC./RIDGEFIELD-2009-BP-05548BP

PATIENT
  Sex: Female

DRUGS (2)
  1. MICARDIS [Suspect]
     Dosage: 40MG
  2. MICARDIS [Suspect]
     Dosage: 80MG

REACTIONS (2)
  - BLOOD CREATININE INCREASED [None]
  - BLOOD PRESSURE INADEQUATELY CONTROLLED [None]
